FAERS Safety Report 23979277 (Version 1)
Quarter: 2024Q2

REPORT INFORMATION
  Report Type: Spontaneous
  Country: US (occurrence: US)
  Receive Date: 20240615
  Receipt Date: 20240615
  Transmission Date: 20240716
  Serious: Yes (Other)
  Sender: FDA-Public Use
  Company Number: US-AUROBINDO-AUR-APL-2024-028801

PATIENT
  Age: 19 Month
  Sex: Female

DRUGS (9)
  1. CLOBAZAM [Suspect]
     Active Substance: CLOBAZAM
     Indication: Encephalitis autoimmune
     Dosage: UNK
     Route: 065
  2. CLONAZEPAM [Suspect]
     Active Substance: CLONAZEPAM
     Indication: Encephalitis autoimmune
     Dosage: UNK
     Route: 065
  3. DIVALPROEX SODIUM [Suspect]
     Active Substance: DIVALPROEX SODIUM
     Indication: Encephalitis autoimmune
     Dosage: UNK
     Route: 065
  4. METHYLPREDNISOLONE SODIUM SUCCINATE [Suspect]
     Active Substance: METHYLPREDNISOLONE SODIUM SUCCINATE
     Indication: Encephalitis autoimmune
     Dosage: UNK
     Route: 042
  5. PREDNISONE [Suspect]
     Active Substance: PREDNISONE
     Indication: Encephalitis autoimmune
     Dosage: UNK
     Route: 065
  6. RUFINAMIDE [Suspect]
     Active Substance: RUFINAMIDE
     Indication: Encephalitis autoimmune
     Dosage: UNK
     Route: 065
  7. VIGABATRIN [Suspect]
     Active Substance: VIGABATRIN
     Indication: Encephalitis autoimmune
     Dosage: UNK
     Route: 065
  8. CANNABIDIOL [Suspect]
     Active Substance: CANNABIDIOL
     Indication: Encephalitis autoimmune
     Dosage: UNK
     Route: 065
  9. RITUXIMAB [Suspect]
     Active Substance: RITUXIMAB
     Indication: Encephalitis autoimmune
     Dosage: UNK
     Route: 065

REACTIONS (1)
  - Drug ineffective [Unknown]
